FAERS Safety Report 21327005 (Version 1)
Quarter: 2022Q3

REPORT INFORMATION
  Report Type: Spontaneous
  Country: US (occurrence: None)
  Receive Date: 20220912
  Receipt Date: 20220912
  Transmission Date: 20221027
  Serious: No
  Sender: FDA-Public Use
  Company Number: None

PATIENT
  Age: 57 Year
  Sex: Female
  Weight: 76.2 kg

DRUGS (2)
  1. CLOPIDOGREL [Suspect]
     Active Substance: CLOPIDOGREL BISULFATE
     Indication: Thrombosis prophylaxis
     Dosage: FREQUENCY : DAILY;?
     Route: 048
     Dates: start: 20220909, end: 20220910
  2. HERBAL [Concomitant]

REACTIONS (8)
  - Abdominal pain [None]
  - Pallor [None]
  - Hyperhidrosis [None]
  - Heart rate decreased [None]
  - Vertigo [None]
  - Fatigue [None]
  - Hypoacusis [None]
  - Product substitution issue [None]

NARRATIVE: CASE EVENT DATE: 20220909
